FAERS Safety Report 23876618 (Version 1)
Quarter: 2024Q2

REPORT INFORMATION
  Report Type: Spontaneous
  Country: IT (occurrence: IT)
  Receive Date: 20240521
  Receipt Date: 20240521
  Transmission Date: 20240716
  Serious: Yes (Hospitalization, Other)
  Sender: FDA-Public Use
  Company Number: IT-PIRAMAL CRITICAL CARE LIMITED-2024-PPL-000334

PATIENT

DRUGS (1)
  1. SEVOFLURANE [Suspect]
     Active Substance: SEVOFLURANE
     Indication: General anaesthesia
     Dosage: UNK
     Dates: start: 20240430, end: 20240430

REACTIONS (5)
  - Prothrombin time prolonged [Recovering/Resolving]
  - Blood bilirubin increased [Recovering/Resolving]
  - Thrombocytopenia [Recovering/Resolving]
  - Alanine aminotransferase increased [Recovering/Resolving]
  - Aspartate aminotransferase increased [Recovering/Resolving]
